FAERS Safety Report 4538691-7 (Version None)
Quarter: 2004Q4

REPORT INFORMATION
  Report Type: 
  Country: None (occurrence: None)
  Receive Date: 20041222
  Receipt Date: 20041203
  Transmission Date: 20050328
  Serious: Yes (Other)
  Sender: FDA-Public Use
  Company Number: PAR COMPLAINT # 04-327

PATIENT
  Sex: Female

DRUGS (3)
  1. ALEVE [Suspect]
     Indication: ARTHRITIS
     Dosage: ORAL
     Route: 048
  2. ASPIRIN [Suspect]
     Indication: ARTHRITIS
  3. IBUPROFEN [Suspect]
     Indication: ARTHRITIS

REACTIONS (4)
  - ACTIVITIES OF DAILY LIVING IMPAIRED [None]
  - ANAEMIA [None]
  - GASTRIC ULCER HAEMORRHAGE [None]
  - PAIN IN EXTREMITY [None]
